FAERS Safety Report 8881839 (Version 2)
Quarter: 2012Q4

REPORT INFORMATION
  Report Type: 
  Country: US (occurrence: US)
  Receive Date: 20121101
  Receipt Date: 20121112
  Transmission Date: 20130627
  Serious: No
  Sender: FDA-Public Use
  Company Number: US-PFIZER INC-2012269284

PATIENT
  Age: 50 Year
  Sex: Female
  Weight: 88.44 kg

DRUGS (6)
  1. LYRICA [Suspect]
     Indication: NEUROPATHY
     Dosage: 300 mg, 2x/day
     Route: 048
     Dates: start: 2006
  2. LYRICA [Suspect]
     Indication: FIBROMYALGIA
     Dosage: 300 mg, daily
     Route: 048
  3. MELOXICAM [Suspect]
     Indication: PAIN
     Dosage: 15 mg, daily
  4. PERCOCET [Suspect]
     Indication: PAIN
     Dosage: 10/325mg, 4x/day
  5. ESTRADIOL [Concomitant]
     Dosage: 2 mg, daily
  6. SYNTHROID [Concomitant]
     Indication: HYPERTHYROIDISM
     Dosage: 200 ug, daily

REACTIONS (2)
  - Drug ineffective [Unknown]
  - Pain [Unknown]
